FAERS Safety Report 25895730 (Version 1)
Quarter: 2025Q4

REPORT INFORMATION
  Report Type: Spontaneous
  Country: US (occurrence: US)
  Receive Date: 20251008
  Receipt Date: 20251008
  Transmission Date: 20260118
  Serious: No
  Sender: MERZ
  Company Number: US-Merz Pharmaceuticals GmbH-2025090000089

PATIENT

DRUGS (3)
  1. XEOMIN [Suspect]
     Active Substance: INCOBOTULINUMTOXINA
     Indication: Product used for unknown indication
  2. XEOMIN [Suspect]
     Active Substance: INCOBOTULINUMTOXINA
  3. GLUCAGON-LIKE PEPTIDE-1 (GLP-1) ANALOGUES [Concomitant]

REACTIONS (1)
  - Therapeutic response decreased [Unknown]
